FAERS Safety Report 9707375 (Version 1)
Quarter: 2013Q4

REPORT INFORMATION
  Report Type: Spontaneous
  Country: US (occurrence: US)
  Receive Date: 20131125
  Receipt Date: 20131125
  Transmission Date: 20140711
  Serious: No
  Sender: FDA-Public Use
  Company Number: US-GLAXOSMITHKLINE-A1040858A

PATIENT
  Age: 66 Year
  Sex: Female

DRUGS (2)
  1. FLOVENT [Suspect]
     Route: 055
  2. NO CONCURRENT MEDICATION [Concomitant]

REACTIONS (2)
  - Upper respiratory tract infection [Unknown]
  - Malaise [Unknown]
